FAERS Safety Report 8517801 (Version 3)
Quarter: 2014Q3

REPORT INFORMATION
  Report Type: Spontaneous
  Country: US (occurrence: US)
  Receive Date: 20120417
  Receipt Date: 20140722
  Transmission Date: 20150326
  Serious: No
  Sender: FDA-Public Use
  Company Number: US-ASTRAZENECA-2011SE21236

PATIENT
  Age: 57 Year
  Sex: Female
  Weight: 54.4 kg

DRUGS (11)
  1. GINGER ROOT [Concomitant]
     Indication: NUTRITIONAL SUPPLEMENTATION
     Dosage: 1 TAB DAILY
     Route: 048
  2. NEXIUM [Suspect]
     Active Substance: ESOMEPRAZOLE MAGNESIUM
     Indication: GASTROOESOPHAGEAL REFLUX DISEASE
     Route: 048
  3. OMEGA 3 [Concomitant]
     Active Substance: OMEGA-3 FATTY ACIDS
     Indication: NUTRITIONAL SUPPLEMENTATION
     Dosage: UNKNOWN DAILY
     Route: 048
  4. VITAMIN C [Concomitant]
     Active Substance: ASCORBIC ACID
     Indication: NUTRITIONAL SUPPLEMENTATION
     Route: 048
  5. NEXIUM [Suspect]
     Active Substance: ESOMEPRAZOLE MAGNESIUM
     Indication: GASTROOESOPHAGEAL REFLUX DISEASE
     Route: 048
     Dates: start: 2008
  6. VITAMIN D [Concomitant]
     Active Substance: CHOLECALCIFEROL
     Indication: NUTRITIONAL SUPPLEMENTATION
     Route: 048
  7. NEXIUM [Suspect]
     Active Substance: ESOMEPRAZOLE MAGNESIUM
     Indication: GASTROOESOPHAGEAL REFLUX DISEASE
     Route: 048
     Dates: start: 2004, end: 2008
  8. HYDROCODONE [Concomitant]
     Active Substance: HYDROCODONE
     Indication: FIBROMYALGIA
     Dosage: 10-300MG 1/2 TAB QID OR HID
     Route: 048
     Dates: start: 2008
  9. SOMA [Concomitant]
     Active Substance: CARISOPRODOL
     Indication: MUSCLE SPASMS
     Route: 048
     Dates: start: 2008
  10. HYDROCODONE [Concomitant]
     Active Substance: HYDROCODONE
     Indication: FIBROMYALGIA
     Dosage: 10-300MG 1/2 TAB QID OR HID
     Route: 048
     Dates: start: 2008
  11. VITAMIN B COMPLEX [Concomitant]
     Active Substance: CYANOCOBALAMIN\DEXPANTHENOL\NIACINAMIDE\PYRIDOXINE HYDROCHLORIDE\RIBOFLAVIN 5^-PHOSPHATE SODIUM\THIAMINE HYDROCHLORIDE\VITAMIN B COMPLEX
     Indication: NUTRITIONAL SUPPLEMENTATION
     Dosage: 1 CAP DAILY
     Route: 048

REACTIONS (16)
  - Drug dose omission [Unknown]
  - Oral discomfort [Unknown]
  - Complex regional pain syndrome [Unknown]
  - Ulcer haemorrhage [Unknown]
  - Intervertebral disc protrusion [Unknown]
  - Eating disorder [Unknown]
  - Intentional product misuse [Unknown]
  - Hiatus hernia [Unknown]
  - Weight decreased [Unknown]
  - Abdominal discomfort [Unknown]
  - Precancerous mucosal lesion [Unknown]
  - Cough [Unknown]
  - Nasal congestion [Unknown]
  - Multiple allergies [Unknown]
  - Road traffic accident [Unknown]
  - Barrett^s oesophagus [Unknown]

NARRATIVE: CASE EVENT DATE: 2004
